FAERS Safety Report 5693187-4 (Version None)
Quarter: 2008Q2

REPORT INFORMATION
  Report Type: 
  Country: None (occurrence: None)
  Receive Date: 20080403
  Receipt Date: 20080401
  Transmission Date: 20081010
  Serious: Yes (Death, Hospitalization)
  Sender: FDA-Public Use
  Company Number: FR-BRISTOL-MYERS SQUIBB COMPANY-14132435

PATIENT
  Age: 79 Year
  Sex: Male

DRUGS (13)
  1. COUMADIN [Suspect]
     Dosage: 07DEC07 DOSE INCRSD FROM 1 MG/D TO 3 MG/D, 10DEC07 INCRSD TO 4 MG/D, 13DEC07 DECREASED TO 3MG/D
     Route: 048
     Dates: start: 20000101
  2. OFLOCET [Concomitant]
     Dates: start: 20071210
  3. PLAVIX [Concomitant]
     Dates: start: 20070901
  4. CORDARONE [Concomitant]
     Dates: start: 20070101
  5. CARDENSIEL [Concomitant]
  6. DEROXAT [Concomitant]
     Dates: start: 20070901
  7. COVERSYL [Concomitant]
  8. ELISOR [Concomitant]
  9. LASILIX [Concomitant]
  10. XANAX [Concomitant]
     Dates: start: 20070901
  11. NEULEPTIL [Concomitant]
     Dosage: NEULEPTIL 1% ;1 DOSAGE FORM=19 DROPS/D
  12. DOLIPRANE [Concomitant]
  13. CEFTRIAXONE [Concomitant]
     Route: 042
     Dates: start: 20071210

REACTIONS (4)
  - ABNORMAL BEHAVIOUR [None]
  - COGNITIVE DISORDER [None]
  - GENERAL PHYSICAL HEALTH DETERIORATION [None]
  - INTERNATIONAL NORMALISED RATIO INCREASED [None]
